FAERS Safety Report 5599902-2 (Version None)
Quarter: 2008Q1

REPORT INFORMATION
  Report Type: 
  Country: None (occurrence: None)
  Receive Date: 20080123
  Receipt Date: 20080111
  Transmission Date: 20080703
  Serious: Yes (Hospitalization)
  Sender: FDA-Public Use
  Company Number: FR-WYE-H02215008

PATIENT
  Sex: Male

DRUGS (2)
  1. CORDARONE [Suspect]
     Indication: ATRIAL FIBRILLATION
     Dosage: UNKNOWN
     Route: 042
     Dates: start: 20071112, end: 20071113
  2. TRIFLUCAN [Suspect]
     Indication: SEPTIC SHOCK
     Dosage: UNKNOWN
     Route: 042
     Dates: start: 20071031, end: 20071113

REACTIONS (2)
  - HYPOTENSION [None]
  - RASH [None]
